FAERS Safety Report 24360216 (Version 1)
Quarter: 2024Q3

REPORT INFORMATION
  Report Type: Spontaneous
  Country: US (occurrence: US)
  Receive Date: 20240925
  Receipt Date: 20240925
  Transmission Date: 20241017
  Serious: Yes (Life-Threatening, Hospitalization, Other)
  Sender: JUBILANT
  Company Number: US-JUBILANT CADISTA PHARMACEUTICALS-2023JUB00051~

PATIENT
  Age: 67 Year
  Sex: Female

DRUGS (1)
  1. AMLODIPINE AND OLMESARTAN MEDOXOMIL [Suspect]
     Active Substance: AMLODIPINE BESYLATE\OLMESARTAN MEDOXOMIL
     Dosage: 150 MG, TOTAL (CUMULATIVE DOSE 150MG)
     Route: 048

REACTIONS (3)
  - Intentional overdose [Recovered/Resolved]
  - Mental disorder [Recovered/Resolved]
  - Distributive shock [Recovered/Resolved]
